FAERS Safety Report 18582549 (Version 1)
Quarter: 2020Q4

REPORT INFORMATION
  Report Type: Spontaneous
  Country: US (occurrence: US)
  Receive Date: 20201205
  Receipt Date: 20201205
  Transmission Date: 20210114
  Serious: No
  Sender: FDA-Public Use
  Company Number: US-LUPIN PHARMACEUTICALS INC.-2012-00478

PATIENT
  Sex: Female
  Weight: 58.97 kg

DRUGS (1)
  1. LEVONORGESTREL AND EE TABLET USP 0.1MG/0.02MG AND EE TABLET USP .01 MG [Suspect]
     Active Substance: ETHINYL ESTRADIOL\LEVONORGESTREL
     Indication: ORAL CONTRACEPTION
     Dosage: UNK UNK,QD,
     Route: 048

REACTIONS (1)
  - Metrorrhagia [Not Recovered/Not Resolved]
